FAERS Safety Report 8176833-5 (Version None)
Quarter: 2012Q1

REPORT INFORMATION
  Report Type: 
  Country: None (occurrence: None)
  Receive Date: 20120301
  Receipt Date: 20120220
  Transmission Date: 20120608
  Serious: Yes (Life-Threatening, Hospitalization, Other)
  Sender: FDA-Public Use
  Company Number: US-BAYER-2011-062492

PATIENT
  Age: 43 Year
  Sex: Female
  Weight: 72.562 kg

DRUGS (7)
  1. VITAMIN D [Concomitant]
     Indication: BONE DISORDER
     Dosage: 1000 MG, QD
     Route: 048
  2. EXCEDRIN [Concomitant]
     Indication: HEADACHE
     Dosage: UNK UNK, UNK
     Route: 048
  3. ADVAIR DISKUS 100/50 [Concomitant]
     Route: 055
  4. YASMIN [Suspect]
     Indication: CONTRACEPTION
     Dosage: UNK
     Route: 048
     Dates: start: 20040306, end: 20060417
  5. ALLEGRA [Concomitant]
     Indication: HYPERSENSITIVITY
     Dosage: 180 MG, ONCE
     Route: 048
     Dates: start: 20030101
  6. ALIVE [Concomitant]
     Indication: VITAMIN SUPPLEMENTATION
     Dosage: UNK
     Route: 048
  7. ASPIRIN [Concomitant]
     Route: 048

REACTIONS (18)
  - MYOCARDIAL INFARCTION [None]
  - CHOLELITHIASIS [None]
  - ANAEMIA [None]
  - SINUS DISORDER [None]
  - LACUNAR INFARCTION [None]
  - HYDROCEPHALUS [None]
  - PAIN [None]
  - ANXIETY [None]
  - MYOCARDITIS [None]
  - PULMONARY OEDEMA [None]
  - SUBARACHNOID HAEMORRHAGE [None]
  - EMOTIONAL DISTRESS [None]
  - CARDIAC FAILURE CONGESTIVE [None]
  - CEREBRAL INFARCTION [None]
  - GALLBLADDER DISORDER [None]
  - VERTEBRAL ARTERY DISSECTION [None]
  - RESPIRATORY FAILURE [None]
  - INJURY [None]
